FAERS Safety Report 16802388 (Version 6)
Quarter: 2020Q2

REPORT INFORMATION
  Report Type: Report from Study
  Country: US (occurrence: US)
  Receive Date: 20190912
  Receipt Date: 20200413
  Transmission Date: 20200713
  Serious: Yes (Hospitalization, Other)
  Sender: FDA-Public Use
  Company Number: US-ACTELION-A-NJ2019-194000

PATIENT
  Age: 64 Year
  Sex: Male
  Weight: 80.27 kg

DRUGS (6)
  1. VELETRI [Suspect]
     Active Substance: EPOPROSTENOL
     Indication: PULMONARY HYPERTENSION
     Dosage: 20 NG/KG, PER MIN
     Route: 042
  2. VELETRI [Suspect]
     Active Substance: EPOPROSTENOL
     Dosage: 24 NG/KG, PER MIN
     Route: 042
  3. VELETRI [Suspect]
     Active Substance: EPOPROSTENOL
     Dosage: 12 NG/KG, PER MIN
     Route: 042
  4. SILDENAFIL CITRATE. [Concomitant]
     Active Substance: SILDENAFIL CITRATE
  5. AMIODARONE [Concomitant]
     Active Substance: AMIODARONE
  6. VELETRI [Suspect]
     Active Substance: EPOPROSTENOL
     Dosage: 26 NG/KG, PER MIN
     Route: 042

REACTIONS (16)
  - Renal disorder [Unknown]
  - Ascites [Unknown]
  - Pyrexia [Unknown]
  - Intestinal cyst [Unknown]
  - Fluid overload [Unknown]
  - Vomiting [Unknown]
  - Cough [Unknown]
  - Localised oedema [Unknown]
  - Nausea [Unknown]
  - Increased tendency to bruise [Unknown]
  - Dialysis [Unknown]
  - Urinary tract infection [Unknown]
  - Headache [Unknown]
  - Proctalgia [Unknown]
  - Hospitalisation [Unknown]
  - Paracentesis [Unknown]

NARRATIVE: CASE EVENT DATE: 2020
